FAERS Safety Report 21601948 (Version 1)
Quarter: 2022Q4

REPORT INFORMATION
  Report Type: Spontaneous
  Country: US (occurrence: US)
  Receive Date: 20221116
  Receipt Date: 20221116
  Transmission Date: 20230113
  Serious: No
  Sender: FDA-Public Use
  Company Number: US-BRISTOL-MYERS SQUIBB COMPANY-2022-137930

PATIENT
  Age: 56 Year
  Sex: Female
  Weight: 71.21 kg

DRUGS (1)
  1. REVLIMID [Suspect]
     Active Substance: LENALIDOMIDE
     Indication: Amyloidosis
     Dosage: 1-21 DAYS THEN 7 DAYS OFF
     Route: 048
     Dates: start: 20221115

REACTIONS (1)
  - Off label use [Unknown]
